FAERS Safety Report 6451140-7 (Version None)
Quarter: 2009Q4

REPORT INFORMATION
  Report Type: 
  Country: None (occurrence: None)
  Receive Date: 20091123
  Receipt Date: 20091111
  Transmission Date: 20100525
  Serious: Yes (Other)
  Sender: FDA-Public Use
  Company Number: US-PFIZER INC-2009296874

PATIENT

DRUGS (2)
  1. LOPID [Suspect]
     Dosage: UNK
  2. VERAPAMIL HCL [Suspect]

REACTIONS (3)
  - DRUG LEVEL INCREASED [None]
  - HEPATIC ENZYME INCREASED [None]
  - HEPATITIS [None]
